FAERS Safety Report 12947318 (Version 2)
Quarter: 2016Q4

REPORT INFORMATION
  Report Type: Report from Study
  Country: DE (occurrence: DE)
  Receive Date: 20161116
  Receipt Date: 20161206
  Transmission Date: 20170207
  Serious: Yes (Other)
  Sender: FDA-Public Use
  Company Number: DE-CELGENEUS-DEU-2016111730

PATIENT
  Age: 70 Year
  Sex: Male

DRUGS (1)
  1. ABRAXANE [Suspect]
     Active Substance: PACLITAXEL
     Indication: PANCREATIC CARCINOMA METASTATIC
     Dosage: CUMULATIVE DOSE: 125MG
     Route: 050
     Dates: start: 20161014

REACTIONS (2)
  - Lymphatic disorder [Recovered/Resolved]
  - Blood disorder [Recovered/Resolved]

NARRATIVE: CASE EVENT DATE: 20161021
